FAERS Safety Report 4826254-5 (Version None)
Quarter: 2005Q4

REPORT INFORMATION
  Report Type: 
  Country: None (occurrence: None)
  Receive Date: 20051109
  Receipt Date: 20051109
  Transmission Date: 20060501
  Serious: Yes (Other)
  Sender: FDA-Public Use
  Company Number: None

PATIENT
  Age: 60 Year
  Sex: Female
  Weight: 55.3388 kg

DRUGS (6)
  1. PRINIVIL [Suspect]
     Indication: HYPERTENSION
     Dosage: 40 MG PO DAILY
     Route: 048
     Dates: start: 20051001
  2. NORVASC [Concomitant]
  3. FOL BRE [Concomitant]
  4. VYTORIN [Concomitant]
  5. HUMALOG [Concomitant]
  6. LANTUS [Concomitant]

REACTIONS (3)
  - NAUSEA [None]
  - STOMACH DISCOMFORT [None]
  - VOMITING [None]
